FAERS Safety Report 9992637 (Version 2)
Quarter: 2014Q1

REPORT INFORMATION
  Report Type: Spontaneous
  Country: US (occurrence: US)
  Receive Date: 20140310
  Receipt Date: 20140327
  Transmission Date: 20141002
  Serious: No
  Sender: FDA-Public Use
  Company Number: US-PFIZER INC-2014063716

PATIENT
  Age: 33 Year
  Sex: Male

DRUGS (1)
  1. PRISTIQ [Suspect]
     Dosage: 50 MG, 1X/DAY

REACTIONS (4)
  - Mental disorder [Unknown]
  - Mood swings [Unknown]
  - Impulse-control disorder [Unknown]
  - Anxiety [Unknown]
